FAERS Safety Report 6213501-0 (Version None)
Quarter: 2009Q2

REPORT INFORMATION
  Report Type: 
  Country: None (occurrence: None)
  Receive Date: 20090603
  Receipt Date: 20090529
  Transmission Date: 20091009
  Serious: Yes (Disabling, Other)
  Sender: FDA-Public Use
  Company Number: GB-TEVA-196620ISR

PATIENT
  Sex: Male

DRUGS (4)
  1. DIAZEPAM [Suspect]
  2. HALOPERIDOL [Suspect]
  3. RISPERIDONE [Suspect]
  4. ZUCLOPENTHIXOL [Suspect]

REACTIONS (1)
  - NEUROLEPTIC MALIGNANT SYNDROME [None]
